FAERS Safety Report 10721571 (Version 1)
Quarter: 2015Q1

REPORT INFORMATION
  Report Type: Spontaneous
  Country: IT (occurrence: GR)
  Receive Date: 20150119
  Receipt Date: 20150119
  Transmission Date: 20150721
  Serious: Yes (Death, Other)
  Sender: FDA-Public Use
  Company Number: IT-SIGMA-TAU US-2014STPI000618

PATIENT
  Age: 34 Year
  Sex: Female

DRUGS (12)
  1. ENDOXAN [Suspect]
     Active Substance: CYCLOPHOSPHAMIDE
     Indication: HODGKIN^S DISEASE
     Dosage: 1950 MG, UNK
     Route: 042
     Dates: start: 20140702
  2. ETOPOSIDE. [Suspect]
     Active Substance: ETOPOSIDE
     Indication: HODGKIN^S DISEASE
     Dosage: 300 MG, UNK
     Route: 042
     Dates: start: 20140702
  3. TEVAGRASTIM [Suspect]
     Active Substance: FILGRASTIM
     Indication: WHITE BLOOD CELL COUNT DECREASED
     Dosage: UNK
     Dates: start: 20140710, end: 20140712
  4. ALLOPURINOL. [Concomitant]
     Active Substance: ALLOPURINOL
  5. ONDANSETRON [Suspect]
     Active Substance: ONDANSETRON
     Indication: PRODUCT USED FOR UNKNOWN INDICATION
  6. EMEND [Suspect]
     Active Substance: APREPITANT
     Indication: PROPHYLAXIS OF NAUSEA AND VOMITING
     Dosage: UNK
     Dates: start: 20140702
  7. PREDNISOLONE. [Suspect]
     Active Substance: PREDNISOLONE
     Indication: PRODUCT USED FOR UNKNOWN INDICATION
  8. RANITIDINE [Concomitant]
     Active Substance: RANITIDINE\RANITIDINE HYDROCHLORIDE
     Indication: PRODUCT USED FOR UNKNOWN INDICATION
  9. MATULANE [Suspect]
     Active Substance: PROCARBAZINE HYDROCHLORIDE
     Indication: HODGKIN^S DISEASE
     Dosage: 250 MG, UNK
     Dates: start: 20140702
  10. ZOFRON [Suspect]
     Active Substance: ONDANSETRON
     Indication: PROPHYLAXIS OF NAUSEA AND VOMITING
     Dosage: 2 DF, UNK
  11. ADRIABLASTINA [Suspect]
     Active Substance: DOXORUBICIN
     Indication: HODGKIN^S DISEASE
     Dosage: 55 MG, UNK
     Dates: start: 20140702
  12. MESNA DELTA FARMA (MESNA) [Suspect]
     Active Substance: MESNA
     Indication: PRODUCT USED FOR UNKNOWN INDICATION
     Dosage: UNK
     Dates: start: 20140702

REACTIONS (11)
  - Tachycardia [Not Recovered/Not Resolved]
  - Aspiration [Fatal]
  - Myocardial ischaemia [Fatal]
  - Platelet count increased [None]
  - Vomiting [Not Recovered/Not Resolved]
  - Cardiac arrest [None]
  - Blood urea increased [None]
  - Diarrhoea [Not Recovered/Not Resolved]
  - White blood cell count decreased [None]
  - Pyrexia [Not Recovered/Not Resolved]
  - Neutropenia [Not Recovered/Not Resolved]

NARRATIVE: CASE EVENT DATE: 20140709
